FAERS Safety Report 15672168 (Version 2)
Quarter: 2019Q4

REPORT INFORMATION
  Report Type: Report from Study
  Country: US (occurrence: US)
  Receive Date: 20181129
  Receipt Date: 20191030
  Transmission Date: 20200122
  Serious: Yes (Other)
  Sender: FDA-Public Use
  Company Number: US-TESARO, INC-US-2018TSO02911

PATIENT
  Age: 68 Year
  Sex: Female

DRUGS (4)
  1. NIRAPARIB CAPSULE [Suspect]
     Active Substance: NIRAPARIB
     Indication: METASTASIS
     Dosage: 200 MG, QPM WITHOUT FOOD, 2 CAPSULES BY MOUTH ONCE DAILY
     Route: 048
     Dates: start: 20180528
  2. MAGNESIUM [Concomitant]
     Active Substance: MAGNESIUM
     Indication: PRODUCT USED FOR UNKNOWN INDICATION
  3. NIRAPARIB CAPSULE [Suspect]
     Active Substance: NIRAPARIB
     Dosage: 100 MG ONCE DAILY, HS WITHOUT FOOD
     Route: 048
     Dates: start: 20191014
  4. NIRAPARIB CAPSULE [Suspect]
     Active Substance: NIRAPARIB
     Indication: OVARIAN CANCER
     Dosage: 300 MG, HS WITHOUT FOOD
     Route: 048
     Dates: start: 20190821, end: 20191001

REACTIONS (16)
  - Feeling abnormal [Unknown]
  - Productive cough [Unknown]
  - Dyspnoea [Unknown]
  - Herpes zoster [Not Recovered/Not Resolved]
  - Fatigue [Unknown]
  - Carbohydrate antigen 125 increased [Not Recovered/Not Resolved]
  - Dysphonia [Unknown]
  - Hypertension [Recovered/Resolved]
  - White blood cell count decreased [Not Recovered/Not Resolved]
  - Constipation [Not Recovered/Not Resolved]
  - Haemoglobin decreased [Recovering/Resolving]
  - Cough [Not Recovered/Not Resolved]
  - Tooth infection [Recovered/Resolved]
  - Malaise [Unknown]
  - Red blood cell count decreased [Not Recovered/Not Resolved]
  - Sluggishness [Not Recovered/Not Resolved]

NARRATIVE: CASE EVENT DATE: 201805
